FAERS Safety Report 19751161 (Version 1)
Quarter: 2021Q3

REPORT INFORMATION
  Report Type: Report from Study
  Country: BR (occurrence: BR)
  Receive Date: 20210826
  Receipt Date: 20210826
  Transmission Date: 20211014
  Serious: Yes (Other)
  Sender: FDA-Public Use
  Company Number: NVSC2020BR038129

PATIENT
  Age: 37 Year
  Sex: Male

DRUGS (2)
  1. COSENTYX [Suspect]
     Active Substance: SECUKINUMAB
     Indication: ANKYLOSING SPONDYLITIS
     Dosage: UNK, UNKNOWN
     Route: 065
     Dates: start: 20191027
  2. COSENTYX [Suspect]
     Active Substance: SECUKINUMAB
     Indication: SPONDYLITIS
     Dosage: UNK, UNKNOWN
     Route: 065
     Dates: start: 20200102, end: 2020

REACTIONS (9)
  - Influenza [Unknown]
  - Pharyngeal inflammation [Recovering/Resolving]
  - Ear infection [Unknown]
  - Decreased immune responsiveness [Recovering/Resolving]
  - Inflammation [Unknown]
  - Respiratory tract infection [Unknown]
  - Pharyngitis [Unknown]
  - Tooth infection [Unknown]
  - Influenza [Recovered/Resolved]

NARRATIVE: CASE EVENT DATE: 201911
